FAERS Safety Report 13333315 (Version 5)
Quarter: 2017Q3

REPORT INFORMATION
  Report Type: Report from Study
  Country: US (occurrence: US)
  Receive Date: 20170314
  Receipt Date: 20170712
  Transmission Date: 20171127
  Serious: Yes (Hospitalization, Other)
  Sender: FDA-Public Use
  Company Number: US-GILEAD-2017-0260807

PATIENT
  Age: 62 Year
  Sex: Female
  Weight: 90.7 kg

DRUGS (19)
  1. ZYRTEC [Concomitant]
     Active Substance: CETIRIZINE HYDROCHLORIDE
  2. CHANTIX [Concomitant]
     Active Substance: VARENICLINE TARTRATE
  3. POTASSIUM CHLORIDE. [Suspect]
     Active Substance: POTASSIUM CHLORIDE
     Dosage: 40 MEQ, BID
     Route: 065
     Dates: start: 201703
  4. TRAZODONE [Concomitant]
     Active Substance: TRAZODONE HYDROCHLORIDE
  5. POTASSIUM CHLORIDE. [Suspect]
     Active Substance: POTASSIUM CHLORIDE
     Indication: BLOOD POTASSIUM DECREASED
     Dosage: 40 MEQ, QD
     Route: 048
     Dates: start: 20170323
  6. ASA [Concomitant]
     Active Substance: ASPIRIN
  7. PROZAC [Concomitant]
     Active Substance: FLUOXETINE HYDROCHLORIDE
  8. GABAPENTIN. [Concomitant]
     Active Substance: GABAPENTIN
  9. O2                                 /00150301/ [Concomitant]
     Active Substance: OXYGEN
  10. AMBRISENTAN [Suspect]
     Active Substance: AMBRISENTAN
     Dosage: 10 MG, QD
     Route: 048
     Dates: start: 20160815
  11. SILDENAFIL. [Concomitant]
     Active Substance: SILDENAFIL
  12. THIAMINE. [Concomitant]
     Active Substance: THIAMINE
  13. AMBRISENTAN [Suspect]
     Active Substance: AMBRISENTAN
     Indication: PULMONARY ARTERIAL HYPERTENSION
     Dosage: 5 MG, QD
     Route: 048
     Dates: start: 20160725
  14. HIPREX [Concomitant]
     Active Substance: METHENAMINE HIPPURATE
  15. ADVAIR HFA [Concomitant]
     Active Substance: FLUTICASONE PROPIONATE\SALMETEROL XINAFOATE
  16. ALBUTEROL                          /00139501/ [Concomitant]
     Active Substance: ALBUTEROL
  17. OMEPRAZOLE. [Concomitant]
     Active Substance: OMEPRAZOLE
  18. ATENOLOL. [Concomitant]
     Active Substance: ATENOLOL
  19. LASIX [Concomitant]
     Active Substance: FUROSEMIDE

REACTIONS (7)
  - Vein disorder [Unknown]
  - Cystitis [Not Recovered/Not Resolved]
  - Dyspnoea [Unknown]
  - Joint swelling [Not Recovered/Not Resolved]
  - Cardiac failure congestive [Unknown]
  - Oxygen saturation decreased [Recovered/Resolved]
  - Hypokalaemia [Recovered/Resolved]

NARRATIVE: CASE EVENT DATE: 20170226
